FAERS Safety Report 8395284-1 (Version None)
Quarter: 2012Q2

REPORT INFORMATION
  Report Type: 
  Country: None (occurrence: None)
  Receive Date: 20120530
  Receipt Date: 20120529
  Transmission Date: 20120825
  Serious: Yes (Death, Hospitalization)
  Sender: FDA-Public Use
  Company Number: PHHY2012CO045746

PATIENT
  Age: 62 Year
  Sex: Male

DRUGS (1)
  1. AFINITOR [Suspect]
     Indication: RENAL CELL CARCINOMA
     Dosage: 10 MG, PER DAY
     Dates: start: 20120305

REACTIONS (3)
  - OEDEMA PERIPHERAL [None]
  - RESPIRATORY DISTRESS [None]
  - ABDOMINAL DISTENSION [None]
